FAERS Safety Report 6371935-8 (Version None)
Quarter: 2009Q3

REPORT INFORMATION
  Report Type: 
  Country: None (occurrence: None)
  Receive Date: 20090923
  Receipt Date: 20090911
  Transmission Date: 20100115
  Serious: Yes (Hospitalization, Other)
  Sender: FDA-Public Use
  Company Number: DE-ELI_LILLY_AND_COMPANY-DE200908004322

PATIENT
  Sex: Female

DRUGS (4)
  1. CYMBALTA [Suspect]
     Dosage: 840 MG, UNKNOWN
     Route: 048
     Dates: start: 20090819
  2. REMERGIL [Concomitant]
     Dosage: 105 MG, UNKNOWN
     Route: 065
  3. SEROQUEL [Concomitant]
     Dosage: 2450 MG, UNKNOWN
     Route: 065
  4. LORAZEPAM [Concomitant]
     Dosage: 7 MG, UNKNOWN
     Route: 065

REACTIONS (6)
  - AGITATION [None]
  - FATIGUE [None]
  - INTENTIONAL OVERDOSE [None]
  - SOPOR [None]
  - SUICIDE ATTEMPT [None]
  - TACHYCARDIA [None]
